FAERS Safety Report 7568963-3 (Version None)
Quarter: 2011Q2

REPORT INFORMATION
  Report Type: 
  Country: None (occurrence: None)
  Receive Date: 20110623
  Receipt Date: 20110623
  Transmission Date: 20111010
  Serious: Yes (Hospitalization)
  Sender: FDA-Public Use
  Company Number: DE-UCBSA-001184

PATIENT
  Sex: Female
  Weight: 75 kg

DRUGS (21)
  1. NEUPRO [Suspect]
     Indication: PARKINSON'S DISEASE
     Route: 062
     Dates: start: 20070417, end: 20070515
  2. CARBIDOPA + LEVODOPA [Concomitant]
     Dosage: 100/25 MG: 3X0.5
     Dates: start: 20070613, end: 20070701
  3. MADOPAR LT [Concomitant]
     Dosage: 100/25 MG: 1/2 DAILY
     Dates: start: 20080716
  4. AZILECT [Concomitant]
     Indication: PARKINSON'S DISEASE
     Dates: start: 20081001
  5. NEUPRO [Suspect]
     Route: 062
     Dates: start: 20070530, end: 20070611
  6. NEUPRO [Suspect]
     Route: 062
     Dates: start: 20070612
  7. SELEGILIN [Concomitant]
     Indication: PARKINSON'S DISEASE
     Dates: start: 20000401, end: 20060801
  8. NACOM RETARD [Concomitant]
     Indication: PARKINSON'S DISEASE
     Dosage: 100/25 MG ONCE DAILY
     Dates: start: 20060801, end: 20061117
  9. NACOM RETARD [Concomitant]
     Dosage: 100/25 MG TWICE DAILY
     Dates: start: 20070328
  10. SELEGILIN [Concomitant]
     Dates: start: 20061122, end: 20081001
  11. CARBIDOPA + LEVODOPA [Concomitant]
     Indication: PARKINSON'S DISEASE
     Dosage: 200/50 MG: 3X0.5
     Dates: start: 20021008, end: 20060801
  12. CARBIDOPA + LEVODOPA [Concomitant]
     Dosage: 100/25 MG: 2 X 0.5
     Dates: start: 20070327, end: 20070612
  13. DOPADURA [Concomitant]
     Indication: PARKINSON'S DISEASE
     Dosage: 200/50 MG: 1/2-1/2-0-0
     Dates: start: 20080716
  14. NEUPRO [Suspect]
     Route: 062
     Dates: start: 20070516, end: 20070529
  15. CARBIDOPA + LEVODOPA [Concomitant]
     Dosage: 100/25 MG: 2X0.5
     Dates: start: 20070701
  16. CARBIDOPA + LEVODOPA [Concomitant]
     Dosage: 100/25 MG
     Dates: start: 20061105
  17. MADOPAR LT [Concomitant]
     Indication: PARKINSON'S DISEASE
     Dosage: 100/25 MG
     Dates: start: 20060801
  18. MADOPAR LT [Concomitant]
     Dosage: 100/25 MG ONCE DAILY
     Dates: start: 20080116, end: 20080519
  19. MADOPAR LT [Concomitant]
     Dosage: 2-3 TIMES DAILY AS REQUIRED 100/25 MG
     Dates: start: 20080520
  20. CARBIDOPA + LEVODOPA [Concomitant]
     Dosage: 100 MG IF REQUIRED ONE IN THE EVENING
     Dates: start: 20071105
  21. NACOM RETARD [Concomitant]
     Dosage: 100/25 MG + 2-3 X 0.5
     Dates: start: 20061118, end: 20070327

REACTIONS (1)
  - PARKINSON'S DISEASE [None]
